FAERS Safety Report 7014906-0 (Version None)
Quarter: 2010Q3

REPORT INFORMATION
  Report Type: 
  Country: None (occurrence: None)
  Receive Date: 20100927
  Receipt Date: 20100709
  Transmission Date: 20110219
  Serious: No
  Sender: FDA-Public Use
  Company Number: US-ASTRAZENECA-2010SE32209

PATIENT
  Age: 109 Month
  Sex: Male

DRUGS (3)
  1. ARIMIDEX [Suspect]
     Indication: PEUTZ-JEGHERS SYNDROME
     Route: 048
     Dates: start: 20051201, end: 20060601
  2. ARIMIDEX [Suspect]
     Route: 048
     Dates: start: 20070101, end: 20081201
  3. ARIMIDEX [Suspect]
     Route: 048
     Dates: start: 20100301

REACTIONS (4)
  - GYNAECOMASTIA [None]
  - INTESTINAL POLYP [None]
  - TESTICULAR HYPERTROPHY [None]
  - TESTICULAR MICROLITHIASIS [None]
